FAERS Safety Report 9732676 (Version 2)
Quarter: 2014Q3

REPORT INFORMATION
  Report Type: Spontaneous
  Country: JP (occurrence: JP)
  Receive Date: 20131205
  Receipt Date: 20140710
  Transmission Date: 20150326
  Serious: Yes (Hospitalization, Other)
  Sender: FDA-Public Use
  Company Number: JP-SA-2013SA124314

PATIENT
  Age: 71 Year
  Sex: Male
  Weight: 71 kg

DRUGS (15)
  1. RED BLOOD CELLS, CONCENTRATED [Concomitant]
     Active Substance: HUMAN RED BLOOD CELL
     Dates: start: 20120303, end: 20120305
  2. DECADRON [Suspect]
     Active Substance: DEXAMETHASONE
     Indication: MALAISE
     Route: 048
     Dates: start: 20110917, end: 20131117
  3. ELPLAT [Suspect]
     Active Substance: OXALIPLATIN
     Indication: RECTAL CANCER
     Route: 041
     Dates: start: 20120130, end: 20120130
  4. ELPLAT [Suspect]
     Active Substance: OXALIPLATIN
     Indication: RECTAL CANCER
     Route: 041
     Dates: start: 20130327, end: 20130327
  5. NEO-MINOPHAGEN C [Concomitant]
     Active Substance: AMMONIUM GLYCYRRHIZATE
     Dates: start: 20120921, end: 20121031
  6. ELPLAT [Suspect]
     Active Substance: OXALIPLATIN
     Indication: RECTAL CANCER
     Route: 041
     Dates: start: 20111214, end: 20111214
  7. 5-FU [Concomitant]
     Active Substance: FLUOROURACIL
     Indication: RECTAL CANCER
     Dates: start: 20111214, end: 20130417
  8. ELPLAT [Suspect]
     Active Substance: OXALIPLATIN
     Indication: RECTAL CANCER
     Route: 041
     Dates: start: 20130213, end: 20130213
  9. ELPLAT [Suspect]
     Active Substance: OXALIPLATIN
     Indication: RECTAL CANCER
     Route: 041
     Dates: start: 20130306, end: 20130306
  10. AVASTIN [Concomitant]
     Active Substance: BEVACIZUMAB
     Indication: RECTAL CANCER
     Dates: start: 20130213, end: 20130417
  11. URSO [Concomitant]
     Active Substance: URSODIOL
     Dates: start: 20120913, end: 20121231
  12. ERBITUX [Concomitant]
     Active Substance: CETUXIMAB
     Indication: RECTAL CANCER
     Dates: start: 20111214, end: 20120206
  13. ELPLAT [Suspect]
     Active Substance: OXALIPLATIN
     Indication: RECTAL CANCER
     Route: 041
     Dates: start: 20120105, end: 20120105
  14. ELPLAT [Suspect]
     Active Substance: OXALIPLATIN
     Indication: RECTAL CANCER
     Route: 041
     Dates: start: 20130417, end: 20130417
  15. CALCIUM LEVOFOLINATE [Concomitant]
     Active Substance: LEVOLEUCOVORIN CALCIUM
     Indication: RECTAL CANCER
     Dates: start: 20111214, end: 20130417

REACTIONS (3)
  - Aspartate aminotransferase increased [Recovered/Resolved]
  - Alanine aminotransferase increased [Recovered/Resolved]
  - Hepatitis B [Recovered/Resolved]

NARRATIVE: CASE EVENT DATE: 20120903
